FAERS Safety Report 7898030-0 (Version None)
Quarter: 2011Q4

REPORT INFORMATION
  Report Type: 
  Country: None (occurrence: None)
  Receive Date: 20111107
  Receipt Date: 20111107
  Transmission Date: 20120403
  Serious: Yes (Other)
  Sender: FDA-Public Use
  Company Number: None

PATIENT
  Age: 53 Year
  Sex: Female
  Weight: 99.79 kg

DRUGS (3)
  1. CRESTOR [Suspect]
     Indication: BLOOD CHOLESTEROL INCREASED
     Dosage: 1
     Route: 048
     Dates: start: 20110701, end: 20110718
  2. MIRAPEX [Concomitant]
  3. NEURONTIN [Concomitant]
     Route: 048

REACTIONS (4)
  - PAIN IN EXTREMITY [None]
  - RESTLESS LEGS SYNDROME [None]
  - PAIN [None]
  - INSOMNIA [None]
